FAERS Safety Report 18900471 (Version 1)
Quarter: 2021Q1

REPORT INFORMATION
  Report Type: Spontaneous
  Country: US (occurrence: US)
  Receive Date: 20210217
  Receipt Date: 20210217
  Transmission Date: 20210420
  Serious: No
  Sender: FDA-Public Use
  Company Number: US-SA-2018SA007155

PATIENT
  Age: 76 Year
  Sex: Male

DRUGS (2)
  1. DUPIXENT [Suspect]
     Active Substance: DUPILUMAB
     Indication: DERMATITIS ATOPIC
     Dosage: 300 MG,QOW
     Route: 058
     Dates: start: 20170616
  2. DUPIXENT [Suspect]
     Active Substance: DUPILUMAB
     Indication: RASH

REACTIONS (3)
  - Product use in unapproved indication [Unknown]
  - Product temperature excursion issue [Unknown]
  - Dysphonia [Unknown]

NARRATIVE: CASE EVENT DATE: 2017
